FAERS Safety Report 15704407 (Version 12)
Quarter: 2020Q1

REPORT INFORMATION
  Report Type: Spontaneous
  Country: US (occurrence: US)
  Receive Date: 20181210
  Receipt Date: 20200224
  Transmission Date: 20200409
  Serious: Yes (Hospitalization, Other)
  Sender: FDA-Public Use
  Company Number: US-PFIZER INC-2018507097

PATIENT
  Age: 68 Year
  Sex: Female

DRUGS (2)
  1. MORPHINE [Concomitant]
     Active Substance: MORPHINE
     Indication: NEOPLASM MALIGNANT
     Dosage: 15 MG, UNK(: 2 DAILY 15MG)
  2. IBRANCE [Suspect]
     Active Substance: PALBOCICLIB
     Indication: BREAST CANCER FEMALE
     Dosage: 125 MG, DAILY

REACTIONS (6)
  - Mental disorder [Unknown]
  - Fatigue [Not Recovered/Not Resolved]
  - Malaise [Recovered/Resolved]
  - Deafness [Not Recovered/Not Resolved]
  - Neoplasm progression [Unknown]
  - Visual impairment [Recovered/Resolved]
